FAERS Safety Report 10304769 (Version 1)
Quarter: 2014Q3

REPORT INFORMATION
  Report Type: Spontaneous
  Country: US (occurrence: None)
  Receive Date: 20140710
  Receipt Date: 20140710
  Transmission Date: 20150326
  Serious: Yes (Hospitalization)
  Sender: FDA-Public Use
  Company Number: None

PATIENT
  Age: 10 Year
  Sex: Female
  Weight: 34 kg

DRUGS (3)
  1. METHOTREXATE [Suspect]
     Active Substance: METHOTREXATE
     Dosage: DOSE REDUCED PER PROTOCOL DUE TO MARROW SUPRESSION.  87.5 MG OF PO MTX AND 15 MG OF IT MTX?
     Dates: end: 20140623
  2. VINCRISTINE SULFATE. [Suspect]
     Active Substance: VINCRISTINE SULFATE
     Dates: end: 20140618
  3. MERCAPTOPURINE. [Suspect]
     Active Substance: MERCAPTOPURINE
     Dosage: DOSE REDUCED PER PROTOCOL DUE TO MARROW SUPPRESSION.
     Dates: end: 20140625

REACTIONS (7)
  - Lung infiltration [None]
  - Pneumocystis jirovecii pneumonia [None]
  - Respiratory distress [None]
  - Neutropenia [None]
  - Fungal infection [None]
  - Bacterial infection [None]
  - Hypoxia [None]

NARRATIVE: CASE EVENT DATE: 20140704
